FAERS Safety Report 4681309-3 (Version None)
Quarter: 2005Q2

REPORT INFORMATION
  Report Type: 
  Country: None (occurrence: None)
  Receive Date: 20050603
  Receipt Date: 20050527
  Transmission Date: 20051028
  Serious: Yes (Hospitalization)
  Sender: FDA-Public Use
  Company Number: CA-ROCHE-406184

PATIENT
  Age: 45 Year
  Sex: Male

DRUGS (5)
  1. FUZEON [Suspect]
     Route: 058
     Dates: start: 20050405, end: 20050422
  2. FUZEON [Suspect]
     Route: 058
     Dates: start: 20050510, end: 20050511
  3. VIDEX [Concomitant]
     Route: 048
     Dates: start: 20050405, end: 20050422
  4. SUSTIVA [Concomitant]
     Dosage: EVERY NIGHT AT BEDTIME. STOP DATE: 22 APR 2005. RESTART DATE: 10 MAY 2005.
     Route: 048
     Dates: start: 20050405, end: 20050511
  5. ZERIT [Concomitant]
     Route: 048
     Dates: start: 20050405, end: 20050422

REACTIONS (7)
  - DYSPNOEA [None]
  - INCOHERENT [None]
  - PYREXIA [None]
  - RASH ERYTHEMATOUS [None]
  - RASH GENERALISED [None]
  - RASH PRURITIC [None]
  - TREMOR [None]
